FAERS Safety Report 5375132-4 (Version None)
Quarter: 2007Q2

REPORT INFORMATION
  Report Type: 
  Country: None (occurrence: None)
  Receive Date: 20070629
  Receipt Date: 20060720
  Transmission Date: 20071010
  Serious: No
  Sender: FDA-Public Use
  Company Number: US-ASTRAZENECA-2006UW14830

PATIENT
  Age: 65 Year
  Sex: Male

DRUGS (5)
  1. ZOLADEX [Suspect]
     Indication: PROSTATE CANCER
     Route: 058
  2. OXYBUTYNIN [Concomitant]
  3. SIMVASTATIN [Concomitant]
  4. BICALUTAMIDE [Concomitant]
  5. ALENDRONATE SODIUM [Concomitant]

REACTIONS (1)
  - ABDOMINAL DISTENSION [None]
